FAERS Safety Report 21070602 (Version 1)
Quarter: 2022Q3

REPORT INFORMATION
  Report Type: Spontaneous
  Country: GB (occurrence: GB)
  Receive Date: 20220712
  Receipt Date: 20220712
  Transmission Date: 20221027
  Serious: Yes (Hospitalization, Other)
  Sender: FDA-Public Use
  Company Number: None

PATIENT
  Age: 56 Year
  Sex: Female

DRUGS (11)
  1. SPIRONOLACTONE [Suspect]
     Active Substance: SPIRONOLACTONE
     Dosage: 200 MG
     Route: 048
     Dates: end: 20220222
  2. BENZYDAMINE [Concomitant]
     Active Substance: BENZYDAMINE
     Dosage: 15 ML, AS NEEDED 4 TIMES A DAY AS NEEDED
  3. DOCUSATE [Concomitant]
     Active Substance: DOCUSATE
     Dosage: 20 ML, AS NEEDED TWICE DAILY AS NEEDED. 50MG/5ML
     Route: 048
  4. DERMOL [BENZALKONIUM CHLORIDE;CHLORHEXIDINE HYDROCHLORIDE;ISOPROPYL MY [Concomitant]
     Dosage: UNK, AS NEEDED
  5. MORPHINE [Concomitant]
     Active Substance: MORPHINE
     Dosage: 10 MG, 2X/DAY
  6. ACETAMINOPHEN [Concomitant]
     Active Substance: ACETAMINOPHEN
     Dosage: 1000 MG, AS NEEDED (4 TIMES A DAY AS NECESSARY)
  7. THIAMINE [Concomitant]
     Active Substance: THIAMINE
     Indication: Wernicke^s encephalopathy
     Dosage: 100 MG, 1X/DAY
  8. THIAMINE [Concomitant]
     Active Substance: THIAMINE
     Indication: Prophylaxis
  9. ASCORBIC ACID\NIACINAMIDE\PYRIDOXINE\RIBOFLAVIN\THIAMINE [Concomitant]
     Active Substance: ASCORBIC ACID\NIACINAMIDE\PYRIDOXINE\RIBOFLAVIN\THIAMINE
     Dosage: 1 DF, 3X/DAY
  10. MORPHINE SULFATE [Concomitant]
     Active Substance: MORPHINE SULFATE
     Dosage: 2.5 ML, AS NEEDED (10MG/5ML)
     Route: 048
  11. ENSURE COMPACT [Concomitant]
     Dosage: FRESUBIN 2KCAL CREME DESSERT CHOCOLATE 1 OD ENSURE COMPACT LIQUID 1 6DS

REACTIONS (4)
  - Hallucination, visual [Recovered/Resolved]
  - Hyponatraemia [Recovered/Resolved]
  - Hypovolaemia [Recovered/Resolved]
  - Dehydration [Unknown]

NARRATIVE: CASE EVENT DATE: 20220215
